FAERS Safety Report 24916541 (Version 1)
Quarter: 2025Q1

REPORT INFORMATION
  Report Type: Spontaneous
  Country: NZ (occurrence: NZ)
  Receive Date: 20250203
  Receipt Date: 20250203
  Transmission Date: 20250409
  Serious: Yes (Disabling)
  Sender: MYLAN
  Company Number: NZ-MYLANLABS-2025M1008461

PATIENT
  Sex: Female

DRUGS (1)
  1. ESTRADIOL [Suspect]
     Active Substance: ESTRADIOL
     Indication: Product used for unknown indication
     Route: 062

REACTIONS (4)
  - Drug ineffective [Unknown]
  - Rash [Unknown]
  - Product substitution issue [Unknown]
  - Product adhesion issue [Unknown]
